FAERS Safety Report 8033931-4 (Version None)
Quarter: 2011Q4

REPORT INFORMATION
  Report Type: 
  Country: None (occurrence: None)
  Receive Date: 20111222
  Receipt Date: 20111212
  Transmission Date: 20120403
  Serious: Yes (Death, Life-Threatening, Hospitalization, Other)
  Sender: FDA-Public Use
  Company Number: 2011MA017586

PATIENT
  Sex: Female
  Weight: 79.3795 kg

DRUGS (16)
  1. PRILOSEC [Concomitant]
  2. EPINEPHRINE [Concomitant]
  3. INVANZ [Concomitant]
  4. ALBUTEROL [Concomitant]
  5. BACTROBAN [Concomitant]
  6. DIGOXIN [Suspect]
     Dosage: 250 MCG;QD;PO
     Route: 048
     Dates: start: 20050127, end: 20071103
  7. COUMADIN [Concomitant]
  8. PREVACID [Concomitant]
  9. REGLAN [Concomitant]
  10. BACTRIM [Concomitant]
  11. PROSTAT [Concomitant]
  12. VANCOMYCIN [Concomitant]
  13. ATROPINE [Concomitant]
  14. FORTAZ [Concomitant]
  15. LASIX [Concomitant]
  16. PRIMAXIN [Concomitant]

REACTIONS (56)
  - CARDIAC FAILURE CONGESTIVE [None]
  - ATRIAL FIBRILLATION [None]
  - VASCULAR DEMENTIA [None]
  - CEREBROVASCULAR ACCIDENT [None]
  - HEART RATE INCREASED [None]
  - HYPONATRAEMIA [None]
  - INTERNATIONAL NORMALISED RATIO DECREASED [None]
  - PROTEUS INFECTION [None]
  - MENTAL STATUS CHANGES [None]
  - WOUND INFECTION STAPHYLOCOCCAL [None]
  - OEDEMA [None]
  - FAECAL INCONTINENCE [None]
  - APNOEA [None]
  - PREALBUMIN DECREASED [None]
  - SOMNOLENCE [None]
  - OEDEMA PERIPHERAL [None]
  - URINARY TRACT INFECTION [None]
  - FATIGUE [None]
  - MULTIPLE-DRUG RESISTANCE [None]
  - UROSEPSIS [None]
  - DECUBITUS ULCER [None]
  - SKIN NECROSIS [None]
  - WOUND INFECTION BACTERIAL [None]
  - PUPIL FIXED [None]
  - HYPERTENSION [None]
  - DEPRESSED LEVEL OF CONSCIOUSNESS [None]
  - URINARY INCONTINENCE [None]
  - CARDIO-RESPIRATORY ARREST [None]
  - MUSCULAR WEAKNESS [None]
  - CEREBRAL INFARCTION [None]
  - CEREBRAL ISCHAEMIA [None]
  - HYPOREFLEXIA [None]
  - ARTERIOSCLEROSIS CORONARY ARTERY [None]
  - DECREASED APPETITE [None]
  - ANAEMIA [None]
  - IMPAIRED SELF-CARE [None]
  - LEFT ATRIAL DILATATION [None]
  - PULSELESS ELECTRICAL ACTIVITY [None]
  - HYPOPHAGIA [None]
  - ALTERED STATE OF CONSCIOUSNESS [None]
  - ULCER [None]
  - SEPSIS [None]
  - LETHARGY [None]
  - CARDIOACTIVE DRUG LEVEL INCREASED [None]
  - BLOOD PRESSURE DIASTOLIC DECREASED [None]
  - DEHYDRATION [None]
  - ASTHENIA [None]
  - ACINETOBACTER INFECTION [None]
  - KLEBSIELLA INFECTION [None]
  - CONFUSIONAL STATE [None]
  - ARRHYTHMIA [None]
  - VENTRICULAR HYPERTROPHY [None]
  - HEART RATE DECREASED [None]
  - MENTAL IMPAIRMENT [None]
  - MENTAL DISORDER [None]
  - ENTEROCOCCAL INFECTION [None]
